FAERS Safety Report 5366197-4 (Version None)
Quarter: 2007Q2

REPORT INFORMATION
  Report Type: 
  Country: None (occurrence: None)
  Receive Date: 20070619
  Receipt Date: 20070611
  Transmission Date: 20071010
  Serious: Yes (Hospitalization)
  Sender: FDA-Public Use
  Company Number: 2007AL002353

PATIENT
  Age: 65 Year
  Sex: Female

DRUGS (11)
  1. DIGOXIN [Suspect]
     Indication: ATRIAL FIBRILLATION
     Dosage: 0.625 MG; QD
  2. ATORVASTATIN [Concomitant]
  3. GEMFIBROZIL [Concomitant]
  4. HYDROCHLOROTHIAZIDE [Concomitant]
  5. LISINOPRIL [Concomitant]
  6. MELOXICAM [Concomitant]
  7. OXYNUTYNIN [Concomitant]
  8. RALOXIFENE HCL [Concomitant]
  9. POTASSIUM CITRATE [Concomitant]
  10. WARFARIN SODIUM [Concomitant]
  11. OMEPRAZOLE [Concomitant]

REACTIONS (11)
  - ASTHENIA [None]
  - BALANCE DISORDER [None]
  - CARDIAC MURMUR [None]
  - EXTRASYSTOLES [None]
  - GASTROOESOPHAGEAL REFLUX DISEASE [None]
  - HEART RATE IRREGULAR [None]
  - NAUSEA [None]
  - RESPIRATORY RATE INCREASED [None]
  - THERAPEUTIC AGENT TOXICITY [None]
  - VOMITING [None]
  - XANTHOPSIA [None]
